FAERS Safety Report 6790054-X (Version None)
Quarter: 2010Q2

REPORT INFORMATION
  Report Type: 
  Country: None (occurrence: None)
  Receive Date: 20100624
  Receipt Date: 20100623
  Transmission Date: 20101027
  Serious: Yes (Death)
  Sender: FDA-Public Use
  Company Number: US-PFIZER INC-2010077903

PATIENT
  Sex: Male
  Weight: 53.515 kg

DRUGS (5)
  1. BLINDED *NO SUBJECT DRUG [Suspect]
     Indication: ARRHYTHMIA PROPHYLAXIS
     Dosage: 40 MG, 1X/DAY
     Route: 048
     Dates: start: 20100531
  2. BLINDED *PLACEBO [Suspect]
     Indication: ARRHYTHMIA PROPHYLAXIS
     Dosage: 40 MG, 1X/DAY
     Route: 048
     Dates: start: 20100531
  3. BLINDED ATORVASTATIN CALCIUM [Suspect]
     Indication: ARRHYTHMIA PROPHYLAXIS
     Dosage: 40 MG, 1X/DAY
     Route: 048
     Dates: start: 20100531
  4. ARICEPT [Concomitant]
     Indication: AMNESIA
     Dosage: UNK
     Route: 048
  5. LEKOVIT CA [Concomitant]
     Indication: MEDICAL DIET
     Dosage: UNK
     Route: 048

REACTIONS (1)
  - DEATH [None]
